FAERS Safety Report 8880272 (Version 2)
Quarter: 2014Q1

REPORT INFORMATION
  Report Type: Report from Study
  Country: MX (occurrence: MX)
  Receive Date: 20121101
  Receipt Date: 20140212
  Transmission Date: 20141002
  Serious: Yes (Hospitalization, Other)
  Sender: FDA-Public Use
  Company Number: PHHY2012MX097922

PATIENT
  Age: 77 Year
  Sex: Female

DRUGS (2)
  1. GENTEAL [Suspect]
     Indication: MACULAR DEGENERATION
     Dosage: 3 MG/ML, TID
     Route: 047
  2. CAPTOPRIL [Concomitant]
     Indication: BLOOD PRESSURE ABNORMAL
     Dosage: 2 DF, QD
     Dates: start: 2009

REACTIONS (1)
  - Corneal opacity [Not Recovered/Not Resolved]
